FAERS Safety Report 23454125 (Version 2)
Quarter: 2024Q1

REPORT INFORMATION
  Report Type: Spontaneous
  Country: US (occurrence: US)
  Receive Date: 20240130
  Receipt Date: 20240223
  Transmission Date: 20240410
  Serious: No
  Sender: FDA-Public Use
  Company Number: US-TOLMAR, INC.-24US045829

PATIENT
  Age: 69 Year
  Sex: Male

DRUGS (2)
  1. ELIGARD [Suspect]
     Active Substance: LEUPROLIDE ACETATE
     Indication: Prostate cancer
     Dosage: 22.5 MILLIGRAM
     Dates: start: 20240102
  2. ELIGARD [Suspect]
     Active Substance: LEUPROLIDE ACETATE
     Dosage: 22.5 MILLIGRAM

REACTIONS (3)
  - Intercepted product preparation error [Unknown]
  - Product physical consistency issue [Unknown]
  - Device leakage [Unknown]

NARRATIVE: CASE EVENT DATE: 20240102
